FAERS Safety Report 17712023 (Version 3)
Quarter: 2020Q2

REPORT INFORMATION
  Report Type: Spontaneous
  Country: US (occurrence: US)
  Receive Date: 20200427
  Receipt Date: 20200630
  Transmission Date: 20200714
  Serious: Yes (Other)
  Sender: FDA-Public Use
  Company Number: US-GLAXOSMITHKLINE-US2020AMR070659

PATIENT
  Sex: Female

DRUGS (2)
  1. ZEJULA [Suspect]
     Active Substance: NIRAPARIB
     Dosage: 200 MG, QD
     Route: 048
     Dates: start: 20200424
  2. ZEJULA [Suspect]
     Active Substance: NIRAPARIB
     Indication: OVARIAN CANCER
     Dosage: UNK
     Dates: start: 202002

REACTIONS (7)
  - Blood creatinine increased [Not Recovered/Not Resolved]
  - Neuropathy peripheral [Unknown]
  - Laboratory test abnormal [Unknown]
  - Amnesia [Unknown]
  - Anxiety [Unknown]
  - Gingival bleeding [Unknown]
  - Vaginal haemorrhage [Unknown]
